FAERS Safety Report 16420540 (Version 4)
Quarter: 2019Q3

REPORT INFORMATION
  Report Type: Spontaneous
  Country: DE (occurrence: DE)
  Receive Date: 20190612
  Receipt Date: 20190729
  Transmission Date: 20191004
  Serious: Yes (Hospitalization, Other)
  Sender: FDA-Public Use
  Company Number: DE-PFIZER INC-2019248337

PATIENT
  Age: 58 Year
  Sex: Male

DRUGS (1)
  1. TAVOR (LORAZEPAM) [Suspect]
     Active Substance: LORAZEPAM
     Dosage: UNK

REACTIONS (5)
  - Suicide attempt [Unknown]
  - Suicidal ideation [Unknown]
  - Personality change [Unknown]
  - Depression [Unknown]
  - Aggression [Unknown]
